FAERS Safety Report 8820460 (Version 4)
Quarter: 2013Q2

REPORT INFORMATION
  Report Type: Spontaneous
  Country: US (occurrence: US)
  Receive Date: 20121002
  Receipt Date: 20130411
  Transmission Date: 20140414
  Serious: No
  Sender: FDA-Public Use
  Company Number: US-009507513-1209USA004540

PATIENT
  Age: 20 Year
  Sex: Female
  Weight: 71.11 kg

DRUGS (2)
  1. NEXPLANON [Suspect]
     Indication: CONTRACEPTION
     Dosage: 68 MG, UNK
     Route: 059
     Dates: start: 20120906, end: 20120906
  2. NEXPLANON [Suspect]
     Dosage: 68 MG, UNK
     Route: 059
     Dates: start: 20120906

REACTIONS (2)
  - Device difficult to use [Unknown]
  - No adverse event [Unknown]
